FAERS Safety Report 18341093 (Version 1)
Quarter: 2020Q4

REPORT INFORMATION
  Report Type: Spontaneous
  Country: DK (occurrence: DK)
  Receive Date: 20201003
  Receipt Date: 20201003
  Transmission Date: 20210113
  Serious: Yes (Hospitalization)
  Sender: FDA-Public Use
  Company Number: DK-TEVA-2020-DK-1833926

PATIENT
  Age: 17 Year
  Sex: Female
  Weight: 110 kg

DRUGS (1)
  1. DENISE [Suspect]
     Active Substance: DESOGESTREL\ETHINYL ESTRADIOL
     Indication: CONTRACEPTION
     Dosage: STRENGTH: 150+30 MICROGRAM, 1 DOSAGE FORM
     Route: 048
     Dates: start: 20180718, end: 2018

REACTIONS (2)
  - Peripheral swelling [Recovered/Resolved]
  - Deep vein thrombosis [Recovered/Resolved]

NARRATIVE: CASE EVENT DATE: 20181222
